FAERS Safety Report 18349085 (Version 4)
Quarter: 2021Q4

REPORT INFORMATION
  Report Type: Report from Study
  Country: US (occurrence: US)
  Receive Date: 20201006
  Receipt Date: 20211228
  Transmission Date: 20220303
  Serious: No
  Sender: FDA-Public Use
  Company Number: US-SHIRE-US202032434

PATIENT
  Age: 30 Year
  Sex: Female

DRUGS (2)
  1. VON WILLEBRAND FACTOR HUMAN [Suspect]
     Active Substance: VON WILLEBRAND FACTOR HUMAN
     Indication: Product used for unknown indication
     Dosage: 8880 INTERNATIONAL UNIT
     Route: 042
  2. VON WILLEBRAND FACTOR HUMAN [Suspect]
     Active Substance: VON WILLEBRAND FACTOR HUMAN
     Dosage: 9040 INTERNATIONAL UNIT
     Route: 042

REACTIONS (5)
  - Headache [Not Recovered/Not Resolved]
  - Back pain [Not Recovered/Not Resolved]
  - Nerve block [Unknown]
  - Arthralgia [Unknown]
  - Tenderness [Unknown]

NARRATIVE: CASE EVENT DATE: 20200930
